FAERS Safety Report 12855116 (Version 1)
Quarter: 2016Q4

REPORT INFORMATION
  Report Type: Spontaneous
  Country: DE (occurrence: DE)
  Receive Date: 20161017
  Receipt Date: 20161017
  Transmission Date: 20170207
  Serious: Yes (Other)
  Sender: FDA-Public Use
  Company Number: DE-ALLERGAN-1672497US

PATIENT
  Sex: Female

DRUGS (3)
  1. ESMYA [Suspect]
     Active Substance: ULIPRISTAL ACETATE
     Dosage: 5 MG, QD
     Route: 048
  2. ESMYA [Suspect]
     Active Substance: ULIPRISTAL ACETATE
     Indication: UTERINE LEIOMYOMA
     Dosage: 5 MG, QD
     Route: 048
  3. ESMYA [Suspect]
     Active Substance: ULIPRISTAL ACETATE
     Indication: ANAEMIA
     Dosage: 5 MG, QD
     Route: 048

REACTIONS (2)
  - Amenorrhoea [Unknown]
  - Uterine myoma expulsion [Recovered/Resolved]
